FAERS Safety Report 6999778-2 (Version None)
Quarter: 2010Q3

REPORT INFORMATION
  Report Type: 
  Country: None (occurrence: None)
  Receive Date: 20100920
  Receipt Date: 20100121
  Transmission Date: 20110219
  Serious: No
  Sender: FDA-Public Use
  Company Number: US-ASTRAZENECA-2010SE02939

PATIENT
  Age: 38 Year
  Sex: Male
  Weight: 96.2 kg

DRUGS (3)
  1. SEROQUEL XR [Suspect]
     Indication: BIPOLAR DISORDER
     Route: 048
     Dates: start: 20100117
  2. SEROQUEL XR [Suspect]
     Indication: SUICIDAL IDEATION
     Route: 048
     Dates: start: 20100117
  3. SEROQUEL XR [Suspect]
     Indication: SCHIZOPHRENIA
     Route: 048
     Dates: start: 20100117

REACTIONS (1)
  - AMNESIA [None]
